FAERS Safety Report 18268563 (Version 1)
Quarter: 2020Q3

REPORT INFORMATION
  Report Type: Spontaneous
  Country: US (occurrence: US)
  Receive Date: 20200915
  Receipt Date: 20200915
  Transmission Date: 20201103
  Serious: No
  Sender: FDA-Public Use
  Company Number: US-PERRIGO-19US009840

PATIENT
  Age: 58 Year
  Sex: Female
  Weight: 55.33 kg

DRUGS (3)
  1. LISINOPRIL. [Concomitant]
     Active Substance: LISINOPRIL
     Indication: HYPERTENSION
     Dosage: UNK
     Route: 065
     Dates: start: 2016
  2. MINOXIDIL. [Suspect]
     Active Substance: MINOXIDIL
     Indication: ALOPECIA
     Dosage: 1 ML, SINGLE
     Route: 061
     Dates: start: 20190807, end: 20190807
  3. MINOXIDIL. [Suspect]
     Active Substance: MINOXIDIL
     Dosage: 1 ML, BID
     Route: 061
     Dates: start: 20190808, end: 20190809

REACTIONS (5)
  - Application site erythema [Not Recovered/Not Resolved]
  - Application site pruritus [Recovering/Resolving]
  - Inappropriate schedule of product administration [Recovered/Resolved]
  - Application site paraesthesia [Recovering/Resolving]
  - Application site acne [Not Recovered/Not Resolved]

NARRATIVE: CASE EVENT DATE: 20190807
